FAERS Safety Report 8152895-6 (Version None)
Quarter: 2012Q1

REPORT INFORMATION
  Report Type: 
  Country: None (occurrence: None)
  Receive Date: 20120221
  Receipt Date: 20120209
  Transmission Date: 20120608
  Serious: Yes (Other)
  Sender: FDA-Public Use
  Company Number: US-JNJFOC-20120204658

PATIENT
  Sex: Male
  Weight: 99.79 kg

DRUGS (6)
  1. PROTONIX [Concomitant]
     Indication: COLITIS ULCERATIVE
     Route: 048
  2. MERCAPTOPURINE [Concomitant]
     Indication: COLITIS ULCERATIVE
     Dosage: ONE AND HALF TABLET OF 50 MG
     Route: 048
  3. LOPERAMIDE HCL [Concomitant]
     Indication: COLITIS ULCERATIVE
     Route: 048
  4. REMICADE [Suspect]
     Indication: COLITIS ULCERATIVE
     Route: 042
     Dates: start: 20111222
  5. HYDROCHLOROTHIAZIDE [Concomitant]
     Indication: HYPERTENSION
     Route: 065
  6. REMICADE [Suspect]
     Dosage: DOSAGE AND FREQUENCY UNSPECIFIED
     Route: 042
     Dates: start: 20100901

REACTIONS (5)
  - SEBORRHOEIC KERATOSIS [None]
  - HYPERSENSITIVITY [None]
  - HYPOAESTHESIA [None]
  - PRURITUS GENERALISED [None]
  - OEDEMA PERIPHERAL [None]
